FAERS Safety Report 12094922 (Version 12)
Quarter: 2017Q2

REPORT INFORMATION
  Report Type: Report from Study
  Country: CZ (occurrence: CZ)
  Receive Date: 20160219
  Receipt Date: 20170630
  Transmission Date: 20170829
  Serious: Yes (Hospitalization)
  Sender: FDA-Public Use
  Company Number: CZ-SA-2016SA026728

PATIENT
  Age: 35 Year
  Sex: Female
  Weight: 64 kg

DRUGS (13)
  1. BETMIGA [Concomitant]
     Active Substance: MIRABEGRON
     Indication: MULTIPLE SCLEROSIS
     Route: 048
     Dates: start: 2015
  2. LYRICA [Concomitant]
     Active Substance: PREGABALIN
     Indication: MULTIPLE SCLEROSIS
     Route: 048
     Dates: start: 20150828
  3. METHYLPREDNISOLONE. [Concomitant]
     Active Substance: METHYLPREDNISOLONE
     Indication: MULTIPLE SCLEROSIS RELAPSE
  4. HERPESIN [Concomitant]
     Indication: PROPHYLAXIS
     Route: 048
     Dates: start: 20151102, end: 20151130
  5. TRITTICO [Concomitant]
     Active Substance: TRAZODONE HYDROCHLORIDE
     Indication: MULTIPLE SCLEROSIS
     Route: 048
     Dates: start: 20141219
  6. CONCOR [Concomitant]
     Active Substance: BISOPROLOL FUMARATE
     Route: 048
     Dates: start: 20151001
  7. VESICARE [Concomitant]
     Active Substance: SOLIFENACIN SUCCINATE
     Indication: MULTIPLE SCLEROSIS
     Route: 048
     Dates: start: 2015
  8. TRITTICO [Concomitant]
     Active Substance: TRAZODONE HYDROCHLORIDE
     Indication: DRUG THERAPY
     Route: 048
     Dates: start: 20141219
  9. MAGNESIUM [Concomitant]
     Active Substance: MAGNESIUM
     Indication: MULTIPLE SCLEROSIS
     Route: 048
     Dates: start: 20150605
  10. HELICID [Concomitant]
     Indication: PROPHYLAXIS
     Route: 048
     Dates: start: 20141212
  11. KALIUM [Concomitant]
     Active Substance: POTASSIUM CHLORIDE
     Indication: PROPHYLAXIS
     Route: 048
     Dates: start: 20141219
  12. LEMTRADA [Suspect]
     Active Substance: ALEMTUZUMAB
     Indication: MULTIPLE SCLEROSIS RELAPSE
     Route: 042
     Dates: start: 20151102, end: 20151106
  13. BETMIGA [Concomitant]
     Active Substance: MIRABEGRON
     Indication: DRUG THERAPY
     Route: 048
     Dates: start: 2015

REACTIONS (8)
  - Paraparesis [Recovering/Resolving]
  - Urinary tract infection [Recovered/Resolved]
  - Urticaria [Recovered/Resolved]
  - Herpes zoster [Recovered/Resolved]
  - Acute motor axonal neuropathy [Recovering/Resolving]
  - Gait disturbance [Recovering/Resolving]
  - Normochromic normocytic anaemia [Recovered/Resolved]
  - Respiratory tract infection [Recovered/Resolved]

NARRATIVE: CASE EVENT DATE: 20151106
